FAERS Safety Report 7930488-0 (Version None)
Quarter: 2011Q4

REPORT INFORMATION
  Report Type: 
  Country: None (occurrence: None)
  Receive Date: 20111117
  Receipt Date: 20111101
  Transmission Date: 20120403
  Serious: Yes (Death, Hospitalization)
  Sender: FDA-Public Use
  Company Number: UTC-010786

PATIENT
  Age: 72 Year
  Sex: Female

DRUGS (1)
  1. REMODULIN [Suspect]
     Indication: PULMONARY HYPERTENSION
     Dosage: 100.8 UG/KG (0.07 UG/KG,1 IN 1 MIN)
     Dates: end: 20111001

REACTIONS (1)
  - RIGHT VENTRICULAR FAILURE [None]
